FAERS Safety Report 19943858 (Version 3)
Quarter: 2021Q4

REPORT INFORMATION
  Report Type: Spontaneous
  Country: JP (occurrence: JP)
  Receive Date: 20211012
  Receipt Date: 20211231
  Transmission Date: 20220303
  Serious: Yes (Hospitalization, Other)
  Sender: FDA-Public Use
  Company Number: JP-TAKEDA-2021TJP099807

PATIENT
  Age: 70 Year
  Sex: Female
  Weight: 53 kg

DRUGS (1)
  1. CABOMETYX [Suspect]
     Active Substance: CABOZANTINIB S-MALATE
     Indication: Hepatocellular carcinoma
     Dosage: 60 MG, QD
     Route: 048
     Dates: start: 20210922, end: 20210928

REACTIONS (3)
  - Autoimmune hepatitis [Unknown]
  - Hepatic encephalopathy [Recovering/Resolving]
  - Infection [Unknown]

NARRATIVE: CASE EVENT DATE: 20210928
